FAERS Safety Report 24585511 (Version 1)
Quarter: 2024Q4

REPORT INFORMATION
  Report Type: Spontaneous
  Country: DE (occurrence: DE)
  Receive Date: 20241106
  Receipt Date: 20241106
  Transmission Date: 20250114
  Serious: Yes (Hospitalization, Disabling, Other)
  Sender: SANDOZ
  Company Number: DE-002147023-NVSC2024DE003711

PATIENT
  Age: 11 Year
  Sex: Female

DRUGS (5)
  1. AZATHIOPRINE [Suspect]
     Active Substance: AZATHIOPRINE
     Indication: Sjogren^s syndrome
     Dosage: UNK
     Route: 065
  2. CYCLOSPORINE [Suspect]
     Active Substance: CYCLOSPORINE
     Indication: Sjogren^s syndrome
     Dosage: UNK
     Route: 065
  3. IMMUNE GLOBULIN NOS [Suspect]
     Active Substance: IMMUNE GLOBULIN NOS
     Indication: Sjogren^s syndrome
     Dosage: UNK, HIGH DOSE
     Route: 065
  4. METHOTREXATE [Suspect]
     Active Substance: METHOTREXATE
     Indication: Sjogren^s syndrome
     Dosage: UNK
     Route: 065
  5. PREDNISOLONE [Suspect]
     Active Substance: PREDNISOLONE
     Indication: Sjogren^s syndrome
     Dosage: 10 MG/KG, UNKNOWN, PULSE THERAPY
     Route: 042

REACTIONS (6)
  - Condition aggravated [Unknown]
  - Treatment failure [Unknown]
  - Cytomegalovirus colitis [Unknown]
  - Portal hypertension [Unknown]
  - Hypersplenism [Unknown]
  - Product use in unapproved indication [Unknown]
